FAERS Safety Report 6522348-7 (Version None)
Quarter: 2009Q4

REPORT INFORMATION
  Report Type: 
  Country: None (occurrence: None)
  Receive Date: 20091230
  Receipt Date: 20091222
  Transmission Date: 20100525
  Serious: Yes (Hospitalization)
  Sender: FDA-Public Use
  Company Number: B0621928A

PATIENT
  Sex: Female

DRUGS (1)
  1. AUGMENTIN [Suspect]
     Indication: PROPHYLAXIS
     Dosage: 1G PER DAY
     Route: 048
     Dates: start: 20091126, end: 20091126

REACTIONS (3)
  - DYSPNOEA [None]
  - PRESYNCOPE [None]
  - PRURITUS [None]
